FAERS Safety Report 14838580 (Version 1)
Quarter: 2018Q2

REPORT INFORMATION
  Report Type: Report from Study
  Country: None (occurrence: IT)
  Receive Date: 20180502
  Receipt Date: 20180502
  Transmission Date: 20180711
  Serious: Yes (Death)
  Sender: FDA-Public Use
  Company Number: IT-ABBVIE-18K-083-2342470-00

PATIENT
  Age: 71 Year
  Sex: Male

DRUGS (1)
  1. DUODOPA [Suspect]
     Active Substance: CARBIDOPA\LEVODOPA
     Indication: PARKINSON^S DISEASE
     Dosage: MD 4+3?CR 2,9?ED 3
     Route: 050
     Dates: start: 20100209, end: 20180420

REACTIONS (3)
  - Cardiac arrest [Fatal]
  - General physical health deterioration [Fatal]
  - Respiratory failure [Fatal]

NARRATIVE: CASE EVENT DATE: 201804
